FAERS Safety Report 4924975-7 (Version None)
Quarter: 2006Q1

REPORT INFORMATION
  Report Type: 
  Country: None (occurrence: None)
  Receive Date: 20060222
  Receipt Date: 20060210
  Transmission Date: 20060701
  Serious: Yes (Other)
  Sender: FDA-Public Use
  Company Number: 222184

PATIENT
  Age: 5 Year
  Sex: Female

DRUGS (2)
  1. PULMOZYME [Suspect]
     Indication: CYSTIC FIBROSIS
     Dosage: 2.5 MG; QD, NASAL
     Route: 045
     Dates: start: 20051201, end: 20051215
  2. OMEPRAZOLE [Concomitant]

REACTIONS (3)
  - GASTRIC ULCER [None]
  - OESOPHAGEAL ULCER [None]
  - WEIGHT DECREASED [None]
